FAERS Safety Report 22163999 (Version 2)
Quarter: 2023Q2

REPORT INFORMATION
  Report Type: Spontaneous
  Country: US (occurrence: US)
  Receive Date: 20230402
  Receipt Date: 20230404
  Transmission Date: 20230722
  Serious: Yes (Other)
  Sender: FDA-Public Use
  Company Number: US-009507513-2303USA009105

PATIENT
  Sex: Male
  Weight: 77.098 kg

DRUGS (8)
  1. JANUMET [Suspect]
     Active Substance: METFORMIN HYDROCHLORIDE\SITAGLIPTIN PHOSPHATE
     Indication: Type 2 diabetes mellitus
     Dosage: 50/1000MG/TWICE DAILY, CONCENTRATION: 50/100MG
     Route: 048
     Dates: start: 2020
  2. METFORMIN [Suspect]
     Active Substance: METFORMIN HYDROCHLORIDE
     Indication: Type 2 diabetes mellitus
     Dosage: UNK
     Dates: start: 2020
  3. COREG [Concomitant]
     Active Substance: CARVEDILOL
  4. CARVEDILOL [Concomitant]
     Active Substance: CARVEDILOL
  5. OXYCODONE [Concomitant]
     Active Substance: OXYCODONE
  6. TYLENOL [Concomitant]
     Active Substance: ACETAMINOPHEN
  7. FAMOTIDINE [Concomitant]
     Active Substance: FAMOTIDINE
     Indication: Gastrooesophageal reflux disease
  8. OMEPRAZOLE [Suspect]
     Active Substance: OMEPRAZOLE
     Dosage: UNK

REACTIONS (6)
  - Neck surgery [Not Recovered/Not Resolved]
  - Weight decreased [Not Recovered/Not Resolved]
  - Vomiting [Not Recovered/Not Resolved]
  - Decreased appetite [Not Recovered/Not Resolved]
  - Anaemia [Unknown]
  - Haematocrit abnormal [Unknown]

NARRATIVE: CASE EVENT DATE: 20200101
